FAERS Safety Report 8158661-X (Version None)
Quarter: 2012Q1

REPORT INFORMATION
  Report Type: 
  Country: None (occurrence: None)
  Receive Date: 20120217
  Receipt Date: 20120209
  Transmission Date: 20120608
  Serious: Yes (Congenital Anomaly, Other)
  Sender: FDA-Public Use
  Company Number: DKLU1076864

PATIENT
  Sex: Female
  Weight: 1.71 kg

DRUGS (5)
  1. ONFI (CLOBAZAM) (CLOBAZAM) (2.5 MG) [Suspect]
     Indication: EPILEPSY
     Dosage: 2.5 MG MILLIGRAM(S), 3 IN 1 D, TRANSPLACENTAL
     Route: 064
     Dates: start: 20101217, end: 20110211
  2. LAMOTRIGINE [Suspect]
     Indication: EPILEPSY
     Dosage: TRANSPLACENTAL
     Route: 064
     Dates: start: 20100929, end: 20110211
  3. LAMOTRIGINE [Suspect]
     Indication: EPILEPSY
     Dosage: TRANSPLACENTAL
     Route: 064
     Dates: start: 20100708, end: 20100928
  4. FOLIC ACID [Concomitant]
  5. LEVOTHYROXINE SODIUM [Concomitant]

REACTIONS (15)
  - HYPOGLYCAEMIA NEONATAL [None]
  - ANAEMIA NEONATAL [None]
  - MATERNAL DRUGS AFFECTING FOETUS [None]
  - FEEDING DISORDER NEONATAL [None]
  - MYOCLONUS [None]
  - CAESAREAN SECTION [None]
  - PREMATURE BABY [None]
  - CARDIAC ANEURYSM [None]
  - NEONATAL RESPIRATORY DISTRESS SYNDROME [None]
  - HYPERBILIRUBINAEMIA NEONATAL [None]
  - CEREBRAL HAEMORRHAGE NEONATAL [None]
  - FOETAL HEART RATE DECELERATION [None]
  - CONGENITAL CHOROID PLEXUS CYST [None]
  - ATRIAL SEPTAL DEFECT [None]
  - VENTRICULAR SEPTAL DEFECT [None]
